FAERS Safety Report 14446968 (Version 3)
Quarter: 2018Q3

REPORT INFORMATION
  Report Type: Report from Study
  Country: US (occurrence: US)
  Receive Date: 20180126
  Receipt Date: 20180728
  Transmission Date: 20181010
  Serious: No
  Sender: FDA-Public Use
  Company Number: PHHY2017US120664

PATIENT
  Age: 28 Year
  Sex: Female

DRUGS (2)
  1. ROPINIROLE. [Concomitant]
     Active Substance: ROPINIROLE
     Indication: RESTLESS LEGS SYNDROME
     Dosage: UNK
     Route: 065
     Dates: start: 20170721
  2. GILENYA [Suspect]
     Active Substance: FINGOLIMOD HYDROCHLORIDE
     Indication: MULTIPLE SCLEROSIS
     Dosage: UNK, QD
     Route: 048

REACTIONS (15)
  - Fatigue [Unknown]
  - Viral infection [Recovered/Resolved]
  - Peripheral swelling [Unknown]
  - Somnolence [Unknown]
  - Ligament sprain [Recovered/Resolved]
  - Lymphocyte count decreased [Unknown]
  - Melanocytic naevus [Unknown]
  - Muscular weakness [Unknown]
  - Urinary tract infection [Unknown]
  - Arthralgia [Unknown]
  - Depression [Recovered/Resolved]
  - Muscle spasticity [Unknown]
  - Fibrous histiocytoma [Unknown]
  - Dysaesthesia [Unknown]
  - Solar lentigo [Unknown]

NARRATIVE: CASE EVENT DATE: 20170614
